FAERS Safety Report 4400905-1 (Version None)
Quarter: 2004Q3

REPORT INFORMATION
  Report Type: 
  Country: None (occurrence: None)
  Receive Date: 20040907
  Receipt Date: 20030801
  Transmission Date: 20050211
  Serious: No
  Sender: FDA-Public Use
  Company Number: US-BRISTOL-MYERS SQUIBB COMPANY-12344404

PATIENT
  Age: 68 Year
  Sex: Female
  Weight: 72 kg

DRUGS (3)
  1. COUMADIN [Suspect]
     Indication: DEEP VEIN THROMBOSIS
     Dosage: DOSES VARIED.
     Route: 048
     Dates: start: 19980301
  2. FLAGYL [Suspect]
  3. CECLOR [Suspect]

REACTIONS (4)
  - GLOSSODYNIA [None]
  - STOMATITIS [None]
  - SWOLLEN TONGUE [None]
  - TONGUE BLISTERING [None]
